FAERS Safety Report 4775939-8 (Version None)
Quarter: 2005Q3

REPORT INFORMATION
  Report Type: 
  Country: None (occurrence: None)
  Receive Date: 20050922
  Receipt Date: 20050916
  Transmission Date: 20060218
  Serious: Yes (Other)
  Sender: FDA-Public Use
  Company Number: US-GLAXOSMITHKLINE-A0575105A

PATIENT
  Sex: Female

DRUGS (1)
  1. PAXIL [Suspect]
     Indication: DEPRESSION

REACTIONS (2)
  - DEPRESSION [None]
  - SUICIDE ATTEMPT [None]
